FAERS Safety Report 5478233-5 (Version None)
Quarter: 2007Q4

REPORT INFORMATION
  Report Type: 
  Country: None (occurrence: None)
  Receive Date: 20071005
  Receipt Date: 20071003
  Transmission Date: 20080405
  Serious: Yes (Death, Other)
  Sender: FDA-Public Use
  Company Number: PHBS2007JP16108

PATIENT
  Age: 21 Year
  Sex: Male

DRUGS (4)
  1. NEORAL [Suspect]
     Indication: BONE MARROW TRANSPLANT
     Route: 048
  2. PREDNISOLONE [Concomitant]
     Route: 065
  3. DRUG THERAPY NOS [Concomitant]
  4. ANTITHYMOCYTE IMMUNOGLOBULIN [Concomitant]

REACTIONS (2)
  - INFECTION [None]
  - THROMBOTIC MICROANGIOPATHY [None]
